FAERS Safety Report 5165088-1 (Version None)
Quarter: 2006Q4

REPORT INFORMATION
  Report Type: 
  Country: None (occurrence: None)
  Receive Date: 20061124
  Receipt Date: 20061113
  Transmission Date: 20070319
  Serious: Yes (Death, Other)
  Sender: FDA-Public Use
  Company Number: 2006108501

PATIENT
  Age: 45 Year
  Sex: Male

DRUGS (4)
  1. ZYVOX [Suspect]
     Indication: STAPHYLOCOCCAL INFECTION
     Dosage: 1200 MG (600 MG, 2 IN 1 D), INTRAVENOUS
     Route: 042
     Dates: start: 20060817, end: 20060826
  2. VANCOMYCIN [Concomitant]
  3. MORPHINE [Concomitant]
  4. RANITIDINE [Concomitant]

REACTIONS (14)
  - APLASTIC ANAEMIA [None]
  - CATHETER SITE HAEMORRHAGE [None]
  - CHOLECYSTITIS [None]
  - DIABETES MELLITUS INADEQUATE CONTROL [None]
  - DISEASE RECURRENCE [None]
  - HAEMODIALYSIS [None]
  - HAEMOLYSIS [None]
  - HAEMORRHAGIC DIATHESIS [None]
  - JAUNDICE [None]
  - PURPURA [None]
  - RENAL FAILURE CHRONIC [None]
  - SEPSIS [None]
  - STEVENS-JOHNSON SYNDROME [None]
  - THROMBOCYTOPENIA [None]
